FAERS Safety Report 21629859 (Version 4)
Quarter: 2023Q1

REPORT INFORMATION
  Report Type: Report from Study
  Country: US (occurrence: US)
  Receive Date: 20221122
  Receipt Date: 20230120
  Transmission Date: 20230418
  Serious: No
  Sender: FDA-Public Use
  Company Number: US-002147023-NVSC2022US262925

PATIENT
  Sex: Female

DRUGS (3)
  1. KESIMPTA [Suspect]
     Active Substance: OFATUMUMAB
     Indication: Product used for unknown indication
     Dosage: UNK
     Route: 065
     Dates: start: 20221025
  2. KESIMPTA [Suspect]
     Active Substance: OFATUMUMAB
     Dosage: UNK (NOV DOSE)
     Route: 065
     Dates: start: 20221128
  3. KESIMPTA [Suspect]
     Active Substance: OFATUMUMAB
     Dosage: UNK (DEC DOSE)
     Route: 065
     Dates: start: 20230103

REACTIONS (9)
  - Hypersensitivity [Unknown]
  - Cough [Unknown]
  - Rhinorrhoea [Not Recovered/Not Resolved]
  - Eye pruritus [Unknown]
  - Lacrimation increased [Unknown]
  - Sinus headache [Unknown]
  - Vertigo [Unknown]
  - Vision blurred [Recovered/Resolved]
  - Nasopharyngitis [Unknown]
